FAERS Safety Report 4703966-5 (Version None)
Quarter: 2005Q2

REPORT INFORMATION
  Report Type: 
  Country: None (occurrence: None)
  Receive Date: 20050629
  Receipt Date: 20050615
  Transmission Date: 20051028
  Serious: No
  Sender: FDA-Public Use
  Company Number: 11630

PATIENT
  Age: 14 Year
  Sex: Male

DRUGS (12)
  1. METHOTREXATE [Suspect]
     Dosage: SEE IMAGE
  2. VINCRISTINE [Suspect]
     Dosage: NI/NI/1.4 MG/M2 OTH, IV
     Route: 042
  3. DOXORUBICIN HCL [Suspect]
     Dosage: NI/50 MG/M2 OTH; UNK
  4. METHYLPREDNISOLONE 16MG TAB [Suspect]
     Dosage: NI;V
     Route: 042
  5. PREDNISOLONE [Suspect]
     Dosage: 40 MG/M2 OTH; PO
     Route: 048
  6. CYCLOPHOSPHAMIDE [Suspect]
     Dosage: NI/NI/750 MG/M2 OTH; UNK
     Route: 065
  7. RITUXIMAB [Suspect]
     Dosage: 375 MG/M2 OTH; UNK
     Route: 065
  8. CYTARABINE [Concomitant]
  9. HYDROCORTISONE [Concomitant]
  10. IFOSFAMIDE [Concomitant]
  11. LEUCOVORIN [Concomitant]
  12. DEXAMETHASONE [Concomitant]

REACTIONS (11)
  - CONVULSION [None]
  - CSF TEST ABNORMAL [None]
  - FEBRILE NEUTROPENIA [None]
  - INTESTINAL DILATATION [None]
  - LEUKOPENIA [None]
  - LYMPHOPENIA [None]
  - NEOPLASM MALIGNANT [None]
  - NEUTROPENIA [None]
  - OBSTRUCTION [None]
  - SMALL INTESTINAL OBSTRUCTION [None]
  - THERAPY NON-RESPONDER [None]
